FAERS Safety Report 6296549-X (Version None)
Quarter: 2009Q3

REPORT INFORMATION
  Report Type: 
  Country: None (occurrence: None)
  Receive Date: 20090804
  Receipt Date: 20090728
  Transmission Date: 20100115
  Serious: Yes (Hospitalization)
  Sender: FDA-Public Use
  Company Number: AT-AMGEN-UK322796

PATIENT
  Sex: Female

DRUGS (4)
  1. ROMIPLOSTIM [Suspect]
     Indication: IDIOPATHIC THROMBOCYTOPENIC PURPURA
     Route: 058
     Dates: start: 20080925, end: 20081127
  2. NEURONTIN [Concomitant]
     Route: 065
  3. NEUROBION [Concomitant]
     Route: 048
     Dates: start: 20081205
  4. PANTOPRAZOLE SODIUM [Concomitant]
     Route: 048
     Dates: start: 20080925

REACTIONS (4)
  - DEAFNESS TRANSITORY [None]
  - NYSTAGMUS [None]
  - URINARY TRACT INFECTION [None]
  - VESTIBULAR DISORDER [None]
